FAERS Safety Report 4558810-6 (Version None)
Quarter: 2005Q1

REPORT INFORMATION
  Report Type: 
  Country: None (occurrence: None)
  Receive Date: 20050121
  Receipt Date: 20050113
  Transmission Date: 20050727
  Serious: Yes (Hospitalization)
  Sender: FDA-Public Use
  Company Number: FR-GLAXOSMITHKLINE-B0364530A

PATIENT
  Age: 25 Year
  Sex: Female

DRUGS (6)
  1. EPIVIR [Suspect]
     Indication: HIV INFECTION
     Dosage: 1UNIT PER DAY
     Route: 048
     Dates: start: 20040222, end: 20041126
  2. LEDERFOLINE [Suspect]
     Dosage: 25MG TWICE PER DAY
     Route: 048
     Dates: start: 20040921, end: 20041124
  3. MALOCIDE [Suspect]
     Indication: TOXOPLASMOSIS
     Dosage: 1UNIT PER DAY
     Route: 048
     Dates: start: 20040921, end: 20041124
  4. VIDEX [Suspect]
     Indication: HIV INFECTION
     Dosage: 1UNIT PER DAY
     Route: 048
     Dates: start: 20040921
  5. INVIRASE [Suspect]
     Indication: HIV INFECTION
     Dosage: 3UNIT THREE TIMES PER DAY
     Route: 048
     Dates: start: 20040801, end: 20041126
  6. NORVIR [Suspect]
     Indication: HIV INFECTION
     Dosage: 2UNIT PER DAY
     Route: 048
     Dates: start: 20040801, end: 20041201

REACTIONS (2)
  - NEUTROPENIA [None]
  - WHITE BLOOD CELL COUNT DECREASED [None]
